FAERS Safety Report 9274467 (Version 2)
Quarter: 2013Q2

REPORT INFORMATION
  Report Type: Spontaneous
  Country: US (occurrence: US)
  Receive Date: 20130507
  Receipt Date: 20130619
  Transmission Date: 20140414
  Serious: No
  Sender: FDA-Public Use
  Company Number: US-009507513-1305USA001375

PATIENT
  Age: 16 Year
  Sex: Female
  Weight: 44.9 kg

DRUGS (1)
  1. IMPLANON [Suspect]
     Indication: CONTRACEPTION
     Dosage: 1 ROD UP TO 3 YEAR, IMPLANT RIGHT ARM
     Route: 059
     Dates: start: 20121023

REACTIONS (7)
  - Dizziness postural [Unknown]
  - Implant site pain [Unknown]
  - Nausea [Unknown]
  - Mood swings [Unknown]
  - Depression [Unknown]
  - Weight decreased [Unknown]
  - Device dislocation [Unknown]
